FAERS Safety Report 12607035 (Version 1)
Quarter: 2016Q3

REPORT INFORMATION
  Report Type: Spontaneous
  Country: FR (occurrence: FR)
  Receive Date: 20160729
  Receipt Date: 20160729
  Transmission Date: 20161109
  Serious: Yes (Hospitalization, Other)
  Sender: FDA-Public Use
  Company Number: FR-PFIZER INC-2016349463

PATIENT
  Age: 58 Year
  Sex: Female

DRUGS (10)
  1. DAUNORUBICINE [Concomitant]
     Active Substance: DAUNORUBICIN
     Dosage: UNK
     Dates: start: 201601
  2. CICLOSPORINE [Concomitant]
     Active Substance: CYCLOSPORINE
     Dosage: UNK
     Dates: end: 20160617
  3. BUSULFAN. [Concomitant]
     Active Substance: BUSULFAN
     Dosage: UNK
     Dates: start: 20160528, end: 20160601
  4. AXEPIM [Concomitant]
     Active Substance: CEFEPIME HYDROCHLORIDE
     Indication: PYREXIA
     Dosage: UNK
     Dates: start: 20160602, end: 20160605
  5. LINEZOLIDE [Concomitant]
     Active Substance: LINEZOLID
     Dosage: UNK
     Dates: start: 20160604
  6. ESOMEPRAZOLE [Concomitant]
     Active Substance: ESOMEPRAZOLE
     Dosage: UNK
  7. AMIKLIN /00391001/ [Concomitant]
     Active Substance: AMIKACIN SULFATE
     Indication: PYREXIA
     Dosage: UNK
     Dates: start: 20160602, end: 201606
  8. ARACYTINE [Suspect]
     Active Substance: CYTARABINE
     Indication: NEOPLASM MALIGNANT
     Dosage: UNK, CYCLIC
     Dates: start: 201601, end: 20160604
  9. FLUDARABINE [Concomitant]
     Active Substance: FLUDARABINE PHOSPHATE
     Dosage: UNK
     Dates: start: 20160528, end: 20160601
  10. ACICLOVIR [Concomitant]
     Active Substance: ACYCLOVIR
     Dosage: UNK

REACTIONS (6)
  - Nervous system disorder [Unknown]
  - Myocarditis [Recovered/Resolved]
  - Pyrexia [Unknown]
  - Septic shock [Unknown]
  - Cardiogenic shock [Recovered/Resolved]
  - Acute pulmonary oedema [Unknown]

NARRATIVE: CASE EVENT DATE: 201606
